FAERS Safety Report 5483031-2 (Version None)
Quarter: 2007Q4

REPORT INFORMATION
  Report Type: 
  Country: None (occurrence: None)
  Receive Date: 20071011
  Receipt Date: 20070926
  Transmission Date: 20080405
  Serious: Yes (Other)
  Sender: FDA-Public Use
  Company Number: GR-GENENTECH-249128

PATIENT
  Age: 55 Year
  Sex: Female
  Weight: 100 kg

DRUGS (2)
  1. AVASTIN [Suspect]
     Indication: LUNG CANCER METASTATIC
     Dosage: 5 MG, UNK
     Route: 042
     Dates: start: 20061101
  2. TARCEVA [Suspect]
     Indication: LUNG CANCER METASTATIC
     Dosage: 100 MG, UNK
     Route: 048
     Dates: start: 20061101

REACTIONS (2)
  - COLITIS ULCERATIVE [None]
  - ILEITIS [None]
